FAERS Safety Report 16077661 (Version 1)
Quarter: 2019Q1

REPORT INFORMATION
  Report Type: Spontaneous
  Country: US (occurrence: US)
  Receive Date: 20190315
  Receipt Date: 20190315
  Transmission Date: 20190418
  Serious: No
  Sender: FDA-Public Use
  Company Number: US-SHIRE-US201908599

PATIENT
  Age: 83 Year
  Sex: Female
  Weight: 74.83 kg

DRUGS (1)
  1. XIIDRA [Suspect]
     Active Substance: LIFITEGRAST
     Indication: DRY EYE
     Dosage: 1 GTT DROPS, 2X/DAY:BID
     Route: 047
     Dates: start: 20190309, end: 20190309

REACTIONS (1)
  - Instillation site pain [Recovered/Resolved]

NARRATIVE: CASE EVENT DATE: 20190309
